FAERS Safety Report 4520438-1 (Version None)
Quarter: 2004Q4

REPORT INFORMATION
  Report Type: 
  Country: None (occurrence: None)
  Receive Date: 20041206
  Receipt Date: 20041122
  Transmission Date: 20050328
  Serious: Yes (Hospitalization)
  Sender: FDA-Public Use
  Company Number: 2004-BP-12113NB

PATIENT
  Age: 69 Year
  Sex: Male

DRUGS (6)
  1. MOBIC [Suspect]
     Indication: BACK PAIN
     Dosage: 10 MG (NR) PO
     Route: 048
     Dates: start: 20040405, end: 20041105
  2. SOLON (SOFALCONE) [Suspect]
     Dosage: PO
     Route: 048
  3. GLIMICRON (GLICLAZIDE) (TA) [Suspect]
     Dosage: (40 MG) PO
     Route: 048
  4. PREDNISOLONE [Suspect]
  5. SELBEX (TEPRENONE) [Suspect]
     Dosage: PO
     Route: 048
  6. GASTER (FAMOTIDINE) [Suspect]
     Dosage: PO
     Route: 048

REACTIONS (2)
  - DYSPNOEA EXERTIONAL [None]
  - PNEUMONIA [None]
